FAERS Safety Report 21317484 (Version 1)
Quarter: 2022Q3

REPORT INFORMATION
  Report Type: Spontaneous
  Country: US (occurrence: US)
  Receive Date: 20220911
  Receipt Date: 20220911
  Transmission Date: 20221026
  Serious: No
  Sender: FDA-Public Use
  Company Number: US-SA-SAC20220824000520

PATIENT
  Age: 31 Year
  Sex: Female
  Weight: 72 kg

DRUGS (3)
  1. DUPIXENT [Suspect]
     Active Substance: DUPILUMAB
     Indication: Dermatitis atopic
     Dosage: 300 MG, QOW
     Route: 058
     Dates: start: 202005
  2. GARLIC [Concomitant]
     Active Substance: GARLIC
     Dosage: 1000 MG
  3. CREATINE [Concomitant]
     Active Substance: CREATINE
     Dosage: 5000 5000 MG

REACTIONS (1)
  - COVID-19 [Unknown]
